FAERS Safety Report 6905789-5 (Version None)
Quarter: 2010Q3

REPORT INFORMATION
  Report Type: 
  Country: None (occurrence: None)
  Receive Date: 20100804
  Receipt Date: 20100728
  Transmission Date: 20110219
  Serious: Yes (Death)
  Sender: FDA-Public Use
  Company Number: JP-ROCHE-650266

PATIENT
  Sex: Female

DRUGS (11)
  1. TOCILIZUMAB [Suspect]
     Indication: RHEUMATOID ARTHRITIS
     Route: 041
     Dates: start: 20090714, end: 20090714
  2. ETANERCEPT [Suspect]
     Indication: RHEUMATOID ARTHRITIS
     Route: 058
     Dates: start: 20070330, end: 20090609
  3. EPINEPHRINE [Concomitant]
     Dosage: DRUG: ADRENAL HORMONE PREPARATIONS
  4. RIMATIL [Concomitant]
     Route: 048
     Dates: end: 20090608
  5. ISCOTIN [Concomitant]
     Dosage: FORM: PERORAL AGENT.
     Route: 048
  6. PREDNISOLONE [Concomitant]
     Dosage: DOSE FORM:PERORAL AGENT.
     Route: 048
  7. DECADRON [Concomitant]
     Dosage: DRUG REPORTED AS DECADRON(DEXAMETHASONE SODIUM PHOSPHATE).
     Route: 014
     Dates: start: 20090630, end: 20090630
  8. CLINORIL [Concomitant]
     Route: 048
     Dates: end: 20090807
  9. MUCOSTA [Concomitant]
     Route: 048
     Dates: end: 20090807
  10. HALCION [Concomitant]
     Route: 048
     Dates: end: 20090807
  11. AMLODIPINE BESYLATE [Concomitant]
     Route: 048
     Dates: end: 20090807

REACTIONS (8)
  - DISSEMINATED INTRAVASCULAR COAGULATION [None]
  - HISTIOCYTOSIS HAEMATOPHAGIC [None]
  - JAUNDICE [None]
  - LOSS OF CONSCIOUSNESS [None]
  - LYMPHOMA [None]
  - MULTI-ORGAN FAILURE [None]
  - PANCYTOPENIA [None]
  - RENAL FAILURE ACUTE [None]
